FAERS Safety Report 9224296 (Version 1)
Quarter: 2013Q2

REPORT INFORMATION
  Report Type: Spontaneous
  Country: US (occurrence: None)
  Receive Date: 20130409
  Receipt Date: 20130409
  Transmission Date: 20140414
  Serious: Yes (Life-Threatening)
  Sender: FDA-Public Use
  Company Number: None

PATIENT
  Sex: Female
  Weight: 102.97 kg

DRUGS (2)
  1. LISINOPRIL, 20 MG, AMERICAN HEALTH [Suspect]
     Route: 048
     Dates: start: 201201, end: 201309
  2. LISINOPRIL, 20 MG, AMERICAN HEALTH [Suspect]
     Indication: HYPERTENSION
     Route: 048
     Dates: start: 201201, end: 201309

REACTIONS (3)
  - Neuropathy peripheral [None]
  - Paraesthesia [None]
  - Adverse event [None]
